FAERS Safety Report 8335582-0 (Version None)
Quarter: 2012Q2

REPORT INFORMATION
  Report Type: 
  Country: None (occurrence: None)
  Receive Date: 20120504
  Receipt Date: 20120424
  Transmission Date: 20120825
  Serious: Yes (Hospitalization)
  Sender: FDA-Public Use
  Company Number: JP-BRISTOL-MYERS SQUIBB COMPANY-16476277

PATIENT
  Age: 37 Year
  Sex: Male

DRUGS (1)
  1. AVAPRO [Suspect]
     Indication: HYPERTENSION
     Route: 048
     Dates: start: 20120308, end: 20120318

REACTIONS (3)
  - HYPERKALAEMIA [None]
  - QUADRIPLEGIA [None]
  - PSEUDOMEMBRANOUS COLITIS [None]
